FAERS Safety Report 18089347 (Version 1)
Quarter: 2020Q3

REPORT INFORMATION
  Report Type: Spontaneous
  Country: US (occurrence: US)
  Receive Date: 20200730
  Receipt Date: 20200730
  Transmission Date: 20201103
  Serious: Yes (Hospitalization)
  Sender: FDA-Public Use
  Company Number: US-TAKEDA-2020TUS032412

PATIENT
  Age: 21 Year
  Sex: Male
  Weight: 36.74 kg

DRUGS (2)
  1. ENTYVIO [Suspect]
     Active Substance: VEDOLIZUMAB
     Indication: COLITIS ULCERATIVE
  2. ENTYVIO [Suspect]
     Active Substance: VEDOLIZUMAB
     Indication: CROHN^S DISEASE
     Dosage: 300 MILLIGRAM
     Route: 065
     Dates: start: 20191203, end: 20200625

REACTIONS (3)
  - Anal fistula [Unknown]
  - Drug ineffective [Unknown]
  - Malnutrition [Unknown]

NARRATIVE: CASE EVENT DATE: 20200715
